FAERS Safety Report 15498684 (Version 1)
Quarter: 2018Q4

REPORT INFORMATION
  Report Type: Report from Study
  Country: None (occurrence: PR)
  Receive Date: 20181015
  Receipt Date: 20181015
  Transmission Date: 20190205
  Serious: Yes (Hospitalization)
  Sender: FDA-Public Use
  Company Number: PR-ABBVIE-18K-131-2503218-00

PATIENT
  Sex: Female

DRUGS (1)
  1. HUMIRA [Suspect]
     Active Substance: ADALIMUMAB
     Indication: PSORIASIS
     Route: 058
     Dates: start: 20170406

REACTIONS (5)
  - Infarction [Unknown]
  - Chest pain [Unknown]
  - Burning sensation [Unknown]
  - Hypertension [Unknown]
  - Obstruction [Unknown]

NARRATIVE: CASE EVENT DATE: 2018
